FAERS Safety Report 4501876-X (Version None)
Quarter: 2004Q4

REPORT INFORMATION
  Report Type: 
  Country: None (occurrence: None)
  Receive Date: 20041109
  Receipt Date: 20041027
  Transmission Date: 20050328
  Serious: Yes (Hospitalization)
  Sender: FDA-Public Use
  Company Number: 2004084449

PATIENT
  Age: 77 Year
  Sex: Female

DRUGS (6)
  1. ATORVASTATIN (ATORVASTATIN) [Suspect]
     Indication: HYPERLIPIDAEMIA
     Dosage: 10 MG (10 MG, 1 IN 1 D), ORAL
     Route: 048
     Dates: start: 20020101
  2. DICLOFENAC SODIUM [Suspect]
     Indication: ILL-DEFINED DISORDER
     Dosage: 50 MG (50 MG, 1 IN 1 D), ORAL
     Route: 048
     Dates: start: 19980101, end: 20030101
  3. VERAPAMIL HCL [Suspect]
     Indication: HYPERTENSION
     Dosage: 120 MG (120 MG, 1 IN 1 D), ORAL
     Route: 048
     Dates: start: 19940101
  4. CAPTOPRIL [Suspect]
     Indication: HYPERTENSION
     Dosage: 50 MG (50 MG, 1 IN 1 D), ORAL
     Route: 048
     Dates: start: 20020101
  5. PAROXETINE HCL [Suspect]
     Indication: DEPRESSION
     Dosage: 20 MG (1 IN 1 D), ORAL
     Route: 048
     Dates: start: 20020101
  6. XALACOM (LATANOPROST, TIMOLOL MALEATE) [Suspect]
     Indication: ILL-DEFINED DISORDER
     Dosage: 2.5 ML (2.5 ML, 1 IN 1 D), OPHTHALMIC
     Route: 047
     Dates: start: 19980101

REACTIONS (1)
  - THROMBOCYTOPENIC PURPURA [None]
